FAERS Safety Report 8056402-8 (Version None)
Quarter: 2012Q1

REPORT INFORMATION
  Report Type: 
  Country: None (occurrence: None)
  Receive Date: 20120119
  Receipt Date: 20110404
  Transmission Date: 20120608
  Serious: Yes (Other)
  Sender: FDA-Public Use
  Company Number: US-SANOFI-AVENTIS-2011SA024029

PATIENT
  Age: 86 Year
  Sex: Male

DRUGS (6)
  1. CARVEDILOL [Suspect]
     Route: 065
  2. ANAESTHETICS, GENERAL [Suspect]
     Route: 065
  3. LISINOPRIL [Suspect]
     Route: 065
  4. FUROSEMIDE [Suspect]
     Route: 065
  5. SPIRONOLACTONE [Suspect]
     Route: 065
  6. TYLOX [Suspect]
     Route: 065

REACTIONS (1)
  - HYPOTENSION [None]
